FAERS Safety Report 7970942-9 (Version None)
Quarter: 2011Q4

REPORT INFORMATION
  Report Type: 
  Country: None (occurrence: None)
  Receive Date: 20111122
  Receipt Date: 20110801
  Transmission Date: 20120403
  Serious: No
  Sender: FDA-Public Use
  Company Number: PHHY2011US69585

PATIENT
  Sex: Male

DRUGS (5)
  1. MIRTAZAPINE [Concomitant]
  2. VALIUM [Concomitant]
  3. GILENYA [Suspect]
     Dosage: 1 DF, QD, ORAL
     Route: 048
  4. MULTIVITAMIN [Concomitant]
  5. LISINOPRIL [Concomitant]

REACTIONS (4)
  - VISION BLURRED [None]
  - DIARRHOEA [None]
  - MUSCLE SPASTICITY [None]
  - HEADACHE [None]
